FAERS Safety Report 13451412 (Version 1)
Quarter: 2017Q2

REPORT INFORMATION
  Report Type: Spontaneous
  Country: DE (occurrence: DE)
  Receive Date: 20170418
  Receipt Date: 20170418
  Transmission Date: 20170830
  Serious: Yes (Other)
  Sender: FDA-Public Use
  Company Number: DE-TORRENT-00006366

PATIENT
  Age: 31 Year
  Sex: Female
  Weight: 60 kg

DRUGS (7)
  1. BISOPROLOL FUMARATE. [Concomitant]
     Active Substance: BISOPROLOL FUMARATE
  2. KANRENOL [Concomitant]
     Active Substance: CANRENOATE POTASSIUM
  3. LASIX [Concomitant]
     Active Substance: FUROSEMIDE
  4. BETAMETHASONE. [Concomitant]
     Active Substance: BETAMETHASONE
  5. VALSARTAN. [Suspect]
     Active Substance: VALSARTAN
  6. OMEPRAZOLE. [Concomitant]
     Active Substance: OMEPRAZOLE
  7. ASPIRIN. [Concomitant]
     Active Substance: ASPIRIN

REACTIONS (2)
  - Exposure during pregnancy [Unknown]
  - Oligohydramnios [Recovered/Resolved]
